FAERS Safety Report 4849531-0 (Version None)
Quarter: 2005Q4

REPORT INFORMATION
  Report Type: 
  Country: None (occurrence: None)
  Receive Date: 20051207
  Receipt Date: 20051207
  Transmission Date: 20060501
  Serious: Yes (Death, Life-Threatening)
  Sender: FDA-Public Use
  Company Number: 230008M05ESP

PATIENT
  Age: 18 Year
  Sex: Male

DRUGS (2)
  1. REBIF [Suspect]
  2. VALPROIC ACID [Suspect]
     Indication: EPILEPSY

REACTIONS (4)
  - COMA [None]
  - ENCEPHALOPATHY [None]
  - HEPATITIS FULMINANT [None]
  - RHABDOMYOLYSIS [None]
